FAERS Safety Report 8910253 (Version 1)
Quarter: 2012Q4

REPORT INFORMATION
  Report Type: Report from Study
  Country: JP (occurrence: JP)
  Receive Date: 20121115
  Receipt Date: 20121115
  Transmission Date: 20130627
  Serious: Yes (Other)
  Sender: FDA-Public Use
  Company Number: JP-VERTEX PHARMACEUTICAL INC.-AE-2012-003436

PATIENT
  Age: 64 Year
  Sex: Male

DRUGS (4)
  1. VX-950 (TELAPREVIR) [Suspect]
     Indication: CHRONIC HEPATITIS C
     Dosage: 2250 mg, qd
     Route: 048
     Dates: start: 20120113, end: 20120127
  2. PEGINTRON                          /01543001/ [Suspect]
     Indication: CHRONIC HEPATITIS C
     Dosage: 1.59 ?g/kg, weekly
     Route: 058
     Dates: start: 20120113, end: 20120127
  3. REBETOL [Concomitant]
     Dosage: 800 mg, qd
     Route: 048
     Dates: start: 20120113, end: 20120127
  4. LOXOPROFEN [Concomitant]
     Dosage: 60 mg, prn
     Route: 048
     Dates: start: 20120113, end: 20120119

REACTIONS (3)
  - Weight decreased [Recovered/Resolved]
  - Decreased appetite [Recovered/Resolved]
  - Nausea [Recovered/Resolved]
